FAERS Safety Report 18799706 (Version 4)
Quarter: 2021Q1

REPORT INFORMATION
  Report Type: Report from Study
  Country: BE (occurrence: BE)
  Receive Date: 20210128
  Receipt Date: 20210309
  Transmission Date: 20210419
  Serious: Yes (Other)
  Sender: FDA-Public Use
  Company Number: BE-ALNYLAM PHARMACEUTICALS, INC.-ALN-2021-000213

PATIENT

DRUGS (5)
  1. GIVLAARI [Suspect]
     Active Substance: GIVOSIRAN SODIUM
     Dosage: 1.1 MILLILITER, MONTHLY (1X/4 WEEKS)
     Route: 058
     Dates: start: 20200203
  2. PARACETAMOL [Concomitant]
     Active Substance: ACETAMINOPHEN
     Indication: PAIN
     Dosage: UNK, PRN
  3. NUROFEN [Concomitant]
     Active Substance: IBUPROFEN
     Indication: PAIN
     Dosage: UNK, PRN
  4. GIVLAARI [Suspect]
     Active Substance: GIVOSIRAN SODIUM
     Indication: PORPHYRIA ACUTE
     Dosage: 1.5 MILLILITER, MONTHLY  (1X/4 WEEKS)
     Route: 058
     Dates: start: 20210114
  5. VALSARTAN. [Concomitant]
     Active Substance: VALSARTAN
     Indication: HYPERTENSION
     Dosage: 80 MILLIGRAM, QD
     Route: 048
     Dates: start: 20200831

REACTIONS (1)
  - Blood homocysteine increased [Recovered/Resolved]

NARRATIVE: CASE EVENT DATE: 20210114
